FAERS Safety Report 8340847-2 (Version None)
Quarter: 2012Q2

REPORT INFORMATION
  Report Type: 
  Country: None (occurrence: None)
  Receive Date: 20120503
  Receipt Date: 20120503
  Transmission Date: 20120825
  Serious: Yes (Other)
  Sender: FDA-Public Use
  Company Number: None

PATIENT
  Sex: Female
  Weight: 107.9561 kg

DRUGS (1)
  1. QUETIAPINE [Suspect]
     Indication: BIPOLAR II DISORDER
     Dosage: 3 TABS QHS ORAL
     Route: 048
     Dates: start: 20120401, end: 20120412

REACTIONS (1)
  - INSOMNIA [None]
